FAERS Safety Report 10584500 (Version 1)
Quarter: 2014Q4

REPORT INFORMATION
  Report Type: Spontaneous
  Country: US (occurrence: US)
  Receive Date: 20141114
  Receipt Date: 20141114
  Transmission Date: 20150529
  Serious: Yes (Hospitalization, Other)
  Sender: FDA-Public Use
  Company Number: US-PFIZER INC-2014307072

PATIENT
  Age: 56 Year
  Sex: Female
  Weight: 56.69 kg

DRUGS (3)
  1. XANAX [Concomitant]
     Active Substance: ALPRAZOLAM
     Dosage: UNK
  2. RELPAX [Suspect]
     Active Substance: ELETRIPTAN HYDROBROMIDE
     Indication: MIGRAINE
     Dosage: 5 MG, UNK
  3. EFFEXOR XR [Concomitant]
     Active Substance: VENLAFAXINE HYDROCHLORIDE
     Dosage: UNK

REACTIONS (8)
  - Vomiting projectile [Unknown]
  - Dehydration [Unknown]
  - Vomiting [Unknown]
  - Musculoskeletal discomfort [Unknown]
  - Eating disorder [Unknown]
  - Migraine [Unknown]
  - Tooth disorder [Unknown]
  - Eye pain [Unknown]
